FAERS Safety Report 8369945-4 (Version None)
Quarter: 2012Q2

REPORT INFORMATION
  Report Type: 
  Country: None (occurrence: None)
  Receive Date: 20120518
  Receipt Date: 20120515
  Transmission Date: 20120825
  Serious: Yes (Hospitalization)
  Sender: FDA-Public Use
  Company Number: US-PFIZER INC-2012092178

PATIENT
  Sex: Male
  Weight: 99.7 kg

DRUGS (4)
  1. PAXIL [Concomitant]
     Indication: DEPRESSION
     Dosage: 40 MG, 1 TABLET IN THE MORNING ONCE DAILY
  2. PRAVASTATIN [Concomitant]
     Indication: BLOOD CHOLESTEROL INCREASED
     Dosage: 40 MG, 1X/DAY
     Route: 048
  3. DIAZEPAM [Concomitant]
     Dosage: 10 MG, AS NEEDED
  4. PROTONIX [Suspect]
     Indication: DYSPEPSIA
     Dosage: 40 MG, 1X/DAY
     Route: 048

REACTIONS (3)
  - HYPERTENSION [None]
  - CORONARY ARTERY DISEASE [None]
  - UPPER RESPIRATORY TRACT INFECTION [None]
